FAERS Safety Report 6530863-5 (Version None)
Quarter: 2010Q1

REPORT INFORMATION
  Report Type: 
  Country: None (occurrence: None)
  Receive Date: 20100108
  Receipt Date: 20090421
  Transmission Date: 20100710
  Serious: No
  Sender: FDA-Public Use
  Company Number: A0779935A

PATIENT
  Age: 42 Year
  Sex: Male

DRUGS (8)
  1. LOVAZA [Suspect]
     Dosage: 1CAP PER DAY
     Route: 048
  2. METOPROLOL TARTRATE [Concomitant]
  3. ZANTAC [Concomitant]
  4. NASONEX [Concomitant]
  5. ALLEGRA D 24 HOUR [Concomitant]
  6. XOPENEX [Concomitant]
  7. SOMA [Concomitant]
  8. NAPROXEN [Concomitant]

REACTIONS (1)
  - ASTHENIA [None]
